FAERS Safety Report 7037363-7 (Version None)
Quarter: 2010Q4

REPORT INFORMATION
  Report Type: 
  Country: None (occurrence: None)
  Receive Date: 20101011
  Receipt Date: 20101004
  Transmission Date: 20110411
  Serious: Yes (Other)
  Sender: FDA-Public Use
  Company Number: US-PURDUE-USA-2010-0048543

PATIENT
  Sex: Male

DRUGS (1)
  1. OXYCONTIN [Suspect]
     Indication: PAIN
     Dosage: 80 MG, TID

REACTIONS (4)
  - DRUG EFFECT DECREASED [None]
  - HERPES ZOSTER [None]
  - NAUSEA [None]
  - VOMITING [None]
